FAERS Safety Report 6079740-7 (Version None)
Quarter: 2009Q1

REPORT INFORMATION
  Report Type: 
  Country: None (occurrence: None)
  Receive Date: 20090212
  Receipt Date: 20090130
  Transmission Date: 20090719
  Serious: Yes (Congenital Anomaly)
  Sender: FDA-Public Use
  Company Number: 09-000172

PATIENT
  Sex: Male

DRUGS (1)
  1. DOVONEX [Suspect]
     Dosage: TRANSPLACENTAL
     Route: 064
     Dates: start: 19930902

REACTIONS (2)
  - HYPOSPADIAS [None]
  - MATERNAL DRUGS AFFECTING FOETUS [None]
